FAERS Safety Report 7606593-5 (Version None)
Quarter: 2011Q3

REPORT INFORMATION
  Report Type: 
  Country: None (occurrence: None)
  Receive Date: 20110713
  Receipt Date: 20110701
  Transmission Date: 20111222
  Serious: Yes (Hospitalization)
  Sender: FDA-Public Use
  Company Number: PHHY2011DE48606

PATIENT
  Sex: Female

DRUGS (3)
  1. CONTRACEPTIVES NOS [Concomitant]
     Dosage: UNK UKN, UNK
  2. ANTIBIOTICS [Concomitant]
     Indication: DIARRHOEA
     Dosage: UNK UKN, UNK
     Route: 048
     Dates: start: 20110312, end: 20110316
  3. COARTEM [Suspect]
     Indication: MALARIA
     Dosage: 4 DF, BID
     Dates: start: 20110312, end: 20110314

REACTIONS (1)
  - PARAESTHESIA [None]
